FAERS Safety Report 5226999-1 (Version None)
Quarter: 2007Q1

REPORT INFORMATION
  Report Type: 
  Country: None (occurrence: None)
  Receive Date: 20070202
  Receipt Date: 20070122
  Transmission Date: 20070707
  Serious: Yes (Death, Life-Threatening)
  Sender: FDA-Public Use
  Company Number: FR-BRISTOL-MYERS SQUIBB COMPANY-13652995

PATIENT
  Age: 62 Year
  Sex: Male

DRUGS (2)
  1. COUMADIN [Suspect]
     Indication: PHLEBITIS
     Route: 048
     Dates: start: 20061106, end: 20061209
  2. LOVENOX [Suspect]
     Indication: PHLEBITIS
     Route: 058
     Dates: start: 20061023, end: 20061209

REACTIONS (2)
  - FALL [None]
  - SUBDURAL HAEMATOMA [None]
